FAERS Safety Report 14106825 (Version 1)
Quarter: 2017Q4

REPORT INFORMATION
  Report Type: Spontaneous
  Country: US (occurrence: US)
  Receive Date: 20171018
  Receipt Date: 20171018
  Transmission Date: 20180321
  Serious: Yes (Disabling)
  Sender: FDA-Public Use
  Company Number: None

PATIENT
  Sex: Female
  Weight: 54 kg

DRUGS (5)
  1. PROPANOLOL [Concomitant]
     Active Substance: PROPRANOLOL HYDROCHLORIDE
  2. IMMURAN [Concomitant]
  3. PLAQUENIL [Concomitant]
     Active Substance: HYDROXYCHLOROQUINE SULFATE
  4. MINOCYCLINE [Suspect]
     Active Substance: MINOCYCLINE\MINOCYCLINE HYDROCHLORIDE
     Indication: ACNE
     Dosage: ?          QUANTITY:100 TABLET(S);?
     Route: 048
  5. PRILOSEC [Concomitant]
     Active Substance: OMEPRAZOLE MAGNESIUM

REACTIONS (10)
  - Hepatic enzyme increased [None]
  - Arthralgia [None]
  - Decreased activity [None]
  - Pericarditis [None]
  - Pyrexia [None]
  - Antinuclear antibody positive [None]
  - Ocular hyperaemia [None]
  - Uveitis [None]
  - Joint swelling [None]
  - Autoimmune hepatitis [None]

NARRATIVE: CASE EVENT DATE: 20160901
